FAERS Safety Report 6021057-0 (Version None)
Quarter: 2008Q4

REPORT INFORMATION
  Report Type: 
  Country: None (occurrence: None)
  Receive Date: 20081229
  Receipt Date: 20081218
  Transmission Date: 20090506
  Serious: Yes (Life-Threatening, Hospitalization)
  Sender: FDA-Public Use
  Company Number: DK-JNJFOC-20081205029

PATIENT
  Sex: Female
  Weight: 54 kg

DRUGS (7)
  1. REMICADE [Suspect]
     Route: 042
  2. REMICADE [Suspect]
     Route: 042
  3. REMICADE [Suspect]
     Indication: CROHN'S DISEASE
     Route: 042
  4. VENOFER [Suspect]
     Indication: IRON DEFICIENCY
     Route: 042
  5. VENOFER [Suspect]
     Indication: ANAEMIA
     Route: 042
  6. VIBEDEN [Suspect]
     Indication: MALABSORPTION
  7. DALACIN [Concomitant]
     Indication: INFECTION
     Route: 048

REACTIONS (4)
  - ANAEMIA [None]
  - ANAL CANCER [None]
  - CERVICAL DYSPLASIA [None]
  - IRON DEFICIENCY [None]
